FAERS Safety Report 13999940 (Version 1)
Quarter: 2017Q3

REPORT INFORMATION
  Report Type: Spontaneous
  Country: CA (occurrence: CA)
  Receive Date: 20170922
  Receipt Date: 20170922
  Transmission Date: 20171128
  Serious: Yes (Death, Other)
  Sender: FDA-Public Use
  Company Number: CA-009507513-1709CAN010927

PATIENT
  Age: 84 Year
  Sex: Male

DRUGS (2)
  1. ELIQUIS [Suspect]
     Active Substance: APIXABAN
     Indication: ATRIAL FIBRILLATION
  2. REMERON [Suspect]
     Active Substance: MIRTAZAPINE

REACTIONS (2)
  - Completed suicide [Fatal]
  - Anxiety [Unknown]
